FAERS Safety Report 6142458-6 (Version None)
Quarter: 2009Q2

REPORT INFORMATION
  Report Type: 
  Country: None (occurrence: None)
  Receive Date: 20090402
  Receipt Date: 20090402
  Transmission Date: 20091009
  Serious: Yes (Other)
  Sender: FDA-Public Use
  Company Number: None

PATIENT
  Sex: Female
  Weight: 65.7716 kg

DRUGS (1)
  1. METRONIDAZOLE [Suspect]
     Indication: ROSACEA
     Dosage: THIN LAYER ONCE A DAY FACE
     Dates: start: 20080101, end: 20080301

REACTIONS (1)
  - SECRETION DISCHARGE [None]
